FAERS Safety Report 9941870 (Version 1)
Quarter: 2014Q1

REPORT INFORMATION
  Report Type: Report from Study
  Country: US (occurrence: US)
  Receive Date: 20140303
  Receipt Date: 20140303
  Transmission Date: 20141002
  Serious: No
  Sender: FDA-Public Use
  Company Number: US-ABBVIE-13P-163-1040080-00

PATIENT
  Age: 40 Year
  Sex: Male

DRUGS (2)
  1. HUMIRA [Suspect]
     Indication: CROHN^S DISEASE
     Dates: start: 201010
  2. PENTASA [Concomitant]
     Indication: COLITIS ULCERATIVE
     Dosage: 500 MG X 2 TABS DAILY

REACTIONS (1)
  - Influenza [Recovering/Resolving]
